FAERS Safety Report 24396930 (Version 1)
Quarter: 2024Q4

REPORT INFORMATION
  Report Type: Spontaneous
  Country: US (occurrence: None)
  Receive Date: 20241003
  Receipt Date: 20241003
  Transmission Date: 20250115
  Serious: Yes (Other)
  Sender: Public
  Company Number: None

PATIENT
  Age: 28 Year
  Sex: 0
  Weight: 94.5 kg

DRUGS (3)
  1. OCTAGAM IMMUNE GLOBULIN (HUMAN) [Suspect]
     Active Substance: HUMAN IMMUNOGLOBULIN G
     Indication: Systemic scleroderma
     Dosage: OTHER FREQUENCY : ONCE EVERY 4 WEEKS;?
     Route: 042
     Dates: start: 20241001
  2. ACETAMINOPHEN [Concomitant]
     Active Substance: ACETAMINOPHEN
  3. DIPHENHYDRAMINE [Concomitant]
     Active Substance: DIPHENHYDRAMINE

REACTIONS (5)
  - Pain [None]
  - Infusion related reaction [None]
  - Headache [None]
  - Drug ineffective [None]
  - Head discomfort [None]

NARRATIVE: CASE EVENT DATE: 20241001
